FAERS Safety Report 24167336 (Version 1)
Quarter: 2024Q3

REPORT INFORMATION
  Report Type: Spontaneous
  Country: US (occurrence: US)
  Receive Date: 20240802
  Receipt Date: 20240802
  Transmission Date: 20241017
  Serious: No
  Sender: VERTEX
  Company Number: US-VERTEX PHARMACEUTICALS-2024-012405

PATIENT
  Age: 7 Year
  Sex: Female

DRUGS (1)
  1. TRIKAFTA [Suspect]
     Active Substance: ELEXACAFTOR\IVACAFTOR\TEZACAFTOR
     Indication: Cystic fibrosis
     Dosage: MODIFIED DOSE, 2 AM TABS 1 DAY, 1 TAB NEXT DAY; NEVER NIGHT DOSE
     Route: 048
     Dates: start: 202302

REACTIONS (1)
  - Pseudopapilloedema [Not Recovered/Not Resolved]

NARRATIVE: CASE EVENT DATE: 20240101
